FAERS Safety Report 6750975-0 (Version None)
Quarter: 2010Q2

REPORT INFORMATION
  Report Type: 
  Country: None (occurrence: None)
  Receive Date: 20100602
  Receipt Date: 20100602
  Transmission Date: 20101027
  Serious: Yes (Death, Life-Threatening, Hospitalization)
  Sender: FDA-Public Use
  Company Number: None

PATIENT
  Age: 3 Month
  Sex: Male
  Weight: 8.1647 kg

DRUGS (2)
  1. TYLENOL INFANT DROPS ACETAMINOPHEN 80 MG [Suspect]
     Indication: IMMUNISATION
     Dates: start: 20070715, end: 20070915
  2. TYLENOL INFANT DROPS ACETAMINOPHEN 80 MG [Suspect]
     Indication: TEETHING
     Dates: start: 20070715, end: 20070915

REACTIONS (6)
  - CONVULSION [None]
  - PRODUCT QUALITY ISSUE [None]
  - PYREXIA [None]
  - SUDDEN INFANT DEATH SYNDROME [None]
  - TRANSMISSION OF AN INFECTIOUS AGENT VIA A MEDICINAL PRODUCT [None]
  - UNRESPONSIVE TO STIMULI [None]
